FAERS Safety Report 8216530-0 (Version None)
Quarter: 2012Q1

REPORT INFORMATION
  Report Type: 
  Country: None (occurrence: None)
  Receive Date: 20120316
  Receipt Date: 20120314
  Transmission Date: 20120608
  Serious: Yes (Hospitalization, Other)
  Sender: FDA-Public Use
  Company Number: JP-PFIZER INC-2011313144

PATIENT
  Age: 56 Year
  Sex: Male
  Weight: 57 kg

DRUGS (10)
  1. CABERGOLINE [Suspect]
     Indication: PARKINSON'S DISEASE
     Dosage: 2 MG, 1X/DAY
     Route: 048
     Dates: end: 20110111
  2. SELEGILINE HYDROCHLORIDE [Suspect]
     Indication: PARKINSON'S DISEASE
     Dosage: 3.75 MG, 2X/DAY
     Route: 048
     Dates: end: 20110117
  3. DOPS [Concomitant]
     Indication: PARKINSON'S DISEASE
     Dosage: 200 MG, 3X/DAY
     Route: 048
  4. PERMAX [Suspect]
     Indication: PARKINSON'S DISEASE
     Dosage: 50 UG, 3X/DAY
     Route: 048
     Dates: end: 20110123
  5. REQUIP [Suspect]
     Indication: PARKINSON'S DISEASE
     Dosage: 4 MG, 3X/DAY
     Route: 048
  6. SYMMETREL [Concomitant]
     Indication: PARKINSON'S DISEASE
     Dosage: 100 MG, 2X/DAY
     Route: 048
  7. CARBIDOPA AND LEVODOPA [Concomitant]
     Indication: PARKINSON'S DISEASE
     Dosage: 125 MG, 4X/DAY
     Route: 048
  8. SEROQUEL [Concomitant]
     Indication: PARKINSON'S DISEASE
     Dosage: 25 MG, 1X/DAY
     Route: 048
  9. COMTAN [Concomitant]
     Indication: PARKINSON'S DISEASE
     Dosage: 100 MG, 4X/DAY
     Route: 048
  10. CLONAZEPAM [Concomitant]
     Indication: PARKINSON'S DISEASE
     Dosage: 0.5 MG, 2X/DAY
     Route: 048

REACTIONS (2)
  - HYPERSEXUALITY [None]
  - DRUG WITHDRAWAL SYNDROME [None]
